FAERS Safety Report 5246516-X (Version None)
Quarter: 2007Q1

REPORT INFORMATION
  Report Type: 
  Country: None (occurrence: None)
  Receive Date: 20070226
  Receipt Date: 20060321
  Transmission Date: 20070707
  Serious: No
  Sender: FDA-Public Use
  Company Number: US016827

PATIENT
  Age: 67 Year
  Sex: Female
  Weight: 64.5 kg

DRUGS (4)
  1. MELPHALAN [Suspect]
     Indication: MULTIPLE MYELOMA
     Dosage: 6MG PER DAY
     Route: 048
     Dates: start: 20051206, end: 20051210
  2. ARSENIC TRIOXID [Suspect]
     Indication: MULTIPLE MYELOMA
     Dosage: 16MG PER DAY
     Route: 042
     Dates: start: 20051205
  3. ASCORBIC ACID [Concomitant]
     Dates: start: 20051205
  4. HYZAAR [Concomitant]

REACTIONS (1)
  - NEUTROPHIL COUNT DECREASED [None]
